FAERS Safety Report 15637594 (Version 1)
Quarter: 2018Q4

REPORT INFORMATION
  Report Type: Spontaneous
  Country: US (occurrence: US)
  Receive Date: 20181120
  Receipt Date: 20181120
  Transmission Date: 20190205
  Serious: No
  Sender: FDA-Public Use
  Company Number: US-JNJFOC-20180527952

PATIENT
  Sex: Female

DRUGS (7)
  1. CYCLOBENZAPRINE. [Concomitant]
     Active Substance: CYCLOBENZAPRINE
  2. LISINOPRIL. [Concomitant]
     Active Substance: LISINOPRIL
  3. ANASTROZOLE. [Concomitant]
     Active Substance: ANASTROZOLE
  4. GABAPENTIN. [Concomitant]
     Active Substance: GABAPENTIN
  5. IMBRUVICA [Suspect]
     Active Substance: IBRUTINIB
     Indication: PRODUCT USED FOR UNKNOWN INDICATION
     Route: 048
     Dates: start: 20150610
  6. POTASSIUM [Concomitant]
     Active Substance: POTASSIUM
  7. HYDROCODONE [Concomitant]
     Active Substance: HYDROCODONE

REACTIONS (1)
  - Bronchitis [Unknown]
